FAERS Safety Report 7476692-X (Version None)
Quarter: 2011Q2

REPORT INFORMATION
  Report Type: 
  Country: None (occurrence: None)
  Receive Date: 20110510
  Receipt Date: 20110510
  Transmission Date: 20111010
  Serious: Yes (Other)
  Sender: FDA-Public Use
  Company Number: None

PATIENT
  Sex: Male
  Weight: 74.25 kg

DRUGS (10)
  1. BUPROPION HCL [Suspect]
     Indication: OBSESSIVE-COMPULSIVE DISORDER
     Dosage: 300MG DAILY AT 0900 BY MOUTH
     Route: 048
     Dates: start: 20110116, end: 20110118
  2. IMIPRAMINE [Concomitant]
  3. FLUVOXAMINE [Concomitant]
  4. BUPROPION HCL [Suspect]
     Dosage: 150 MG DAILY AT 1700 BY MOUTH
     Route: 048
     Dates: start: 20110112, end: 20110118
  5. CLONAZEPAM [Concomitant]
  6. OLANZAPINE [Concomitant]
  7. GUANFACINE HYDROCHLORIDE [Concomitant]
  8. DESMOPRESSIN ACETATE [Concomitant]
  9. LISDEXAMFETAMINE [Concomitant]
  10. MINOCYCLINE HCL [Concomitant]

REACTIONS (4)
  - FALL [None]
  - HEAD INJURY [None]
  - CONVULSION [None]
  - CYANOSIS [None]
